FAERS Safety Report 5706976-4 (Version None)
Quarter: 2008Q2

REPORT INFORMATION
  Report Type: 
  Country: None (occurrence: None)
  Receive Date: 20080416
  Receipt Date: 20080407
  Transmission Date: 20081010
  Serious: Yes (Other)
  Sender: FDA-Public Use
  Company Number: GR-BRISTOL-MYERS SQUIBB COMPANY-14151781

PATIENT
  Age: 69 Year
  Sex: Female

DRUGS (8)
  1. CYCLOPHOSPHAMIDE [Suspect]
     Indication: BREAST CANCER
     Route: 042
     Dates: start: 20070313, end: 20070313
  2. METHOTREXATE [Suspect]
     Indication: BREAST CANCER
     Route: 042
     Dates: start: 20070313, end: 20070313
  3. FLUOROURACIL [Suspect]
     Indication: BREAST CANCER
     Route: 042
     Dates: start: 20070313, end: 20070313
  4. ZOFRAN [Concomitant]
  5. ZANTAC [Concomitant]
  6. FENISTIL [Concomitant]
  7. DEXAMETHASONE [Concomitant]
  8. NEUPOGEN [Concomitant]

REACTIONS (2)
  - GAMMA-GLUTAMYLTRANSFERASE ABNORMAL [None]
  - HYPOKALAEMIA [None]
